FAERS Safety Report 24897775 (Version 4)
Quarter: 2025Q1

REPORT INFORMATION
  Report Type: Report from Study
  Country: US (occurrence: US)
  Receive Date: 20250129
  Receipt Date: 20250218
  Transmission Date: 20250409
  Serious: No
  Sender: AMGEN
  Company Number: US-AMGEN-USASL2025004428

PATIENT
  Age: 66 Year
  Sex: Female

DRUGS (3)
  1. NEULASTA [Suspect]
     Active Substance: PEGFILGRASTIM
     Indication: Prophylaxis
     Route: 065
     Dates: start: 20250104
  2. CLARITIN [Concomitant]
     Active Substance: LORATADINE
     Dates: start: 20250104
  3. ZOFRAN [Concomitant]
     Active Substance: ONDANSETRON HYDROCHLORIDE
     Dates: start: 20250104

REACTIONS (6)
  - Nasal congestion [Unknown]
  - Laziness [Unknown]
  - Alopecia [Unknown]
  - Abdominal pain upper [Unknown]
  - Device deployment issue [Unknown]
  - Feeling abnormal [Unknown]

NARRATIVE: CASE EVENT DATE: 20250101
